FAERS Safety Report 7702772-7 (Version None)
Quarter: 2011Q3

REPORT INFORMATION
  Report Type: 
  Country: None (occurrence: None)
  Receive Date: 20110823
  Receipt Date: 20110811
  Transmission Date: 20111222
  Serious: Yes (Other)
  Sender: FDA-Public Use
  Company Number: BR-BAYER-2011-073904

PATIENT
  Age: 22 Year
  Sex: Female

DRUGS (1)
  1. ESTRADIOL VALERATE/DIENOGEST [Suspect]
     Indication: CONTRACEPTION
     Dosage: UNK
     Route: 048
     Dates: start: 20110101

REACTIONS (5)
  - HAEMORRHAGIC DIATHESIS [None]
  - VAGINAL HAEMORRHAGE [None]
  - METRORRHAGIA [None]
  - PIGMENTATION DISORDER [None]
  - RASH [None]
